FAERS Safety Report 4956572-1 (Version None)
Quarter: 2006Q1

REPORT INFORMATION
  Report Type: 
  Country: None (occurrence: None)
  Receive Date: 20060329
  Receipt Date: 20050117
  Transmission Date: 20060701
  Serious: Yes (Hospitalization)
  Sender: FDA-Public Use
  Company Number: US-MERCK-0501USA02985

PATIENT
  Age: 65 Year
  Sex: Female
  Weight: 86 kg

DRUGS (6)
  1. VIOXX [Suspect]
     Indication: PAIN IN EXTREMITY
     Route: 048
     Dates: start: 20010101, end: 20040101
  2. VIOXX [Suspect]
     Route: 048
     Dates: start: 20010101, end: 20040101
  3. VIOXX [Suspect]
     Indication: ARTHRALGIA
     Route: 048
     Dates: start: 20010101, end: 20040101
  4. VIOXX [Suspect]
     Route: 048
     Dates: start: 20010101, end: 20040101
  5. VIOXX [Suspect]
     Route: 048
     Dates: start: 20010101, end: 20040101
  6. VIOXX [Suspect]
     Route: 048
     Dates: start: 20010101, end: 20040101

REACTIONS (2)
  - FAECALOMA [None]
  - MYOCARDIAL INFARCTION [None]
